FAERS Safety Report 9891983 (Version 1)
Quarter: 2014Q1

REPORT INFORMATION
  Report Type: Spontaneous
  Country: US (occurrence: None)
  Receive Date: 20140210
  Receipt Date: 20140210
  Transmission Date: 20141002
  Serious: Yes (Hospitalization, Disabling)
  Sender: FDA-Public Use
  Company Number: 2014P1000787

PATIENT
  Age: 36 Year
  Sex: Female

DRUGS (9)
  1. MIDAZOLAM HCL [Suspect]
     Indication: AGITATION
  2. PROPOFOL [Suspect]
     Indication: SEDATIVE THERAPY
     Route: 042
  3. URSODIOL [Concomitant]
  4. GLYCOPYRROLATE [Concomitant]
  5. PHENYLEPHRINE [Concomitant]
  6. LIDOCAINE [Concomitant]
  7. DAILY MUTIVITAMINS [Concomitant]
  8. VITAMIN B12 [Concomitant]
  9. CALCIUM [Concomitant]

REACTIONS (8)
  - Agitation [None]
  - Amnesia [None]
  - Dissociative amnesia [None]
  - Delusion [None]
  - Retrograde amnesia [None]
  - Activities of daily living impaired [None]
  - Disorientation [None]
  - Urine ketone body present [None]
